FAERS Safety Report 4944052-9 (Version None)
Quarter: 2006Q1

REPORT INFORMATION
  Report Type: 
  Country: None (occurrence: None)
  Receive Date: 20060315
  Receipt Date: 20060308
  Transmission Date: 20060701
  Serious: Yes (Hospitalization)
  Sender: FDA-Public Use
  Company Number: US-JNJFOC-20060302133

PATIENT
  Age: 73 Year
  Sex: Female

DRUGS (13)
  1. EXTRA STRENGTH TYLENOL [Suspect]
     Indication: SUICIDE ATTEMPT
     Dosage: ^2 HANDFULS^
     Route: 048
  2. MULTIVITAMIN [Concomitant]
  3. MULTIVITAMIN [Concomitant]
  4. MULTIVITAMIN [Concomitant]
  5. MULTIVITAMIN [Concomitant]
  6. MULTIVITAMIN [Concomitant]
  7. MULTIVITAMIN [Concomitant]
  8. MULTIVITAMIN [Concomitant]
  9. MULTIVITAMIN [Concomitant]
  10. CALCIUM GLUCONATE [Concomitant]
  11. METRONIDAZOLE [Concomitant]
     Indication: GASTROINTESTINAL DISORDER
  12. LOPRESSOR [Concomitant]
     Indication: HYPERTENSION
  13. SYMBALTA [Concomitant]
     Indication: ANTIDEPRESSANT THERAPY

REACTIONS (3)
  - DELUSION [None]
  - HALLUCINATION [None]
  - OVERDOSE [None]
